FAERS Safety Report 5696137-X (Version None)
Quarter: 2008Q2

REPORT INFORMATION
  Report Type: 
  Country: None (occurrence: None)
  Receive Date: 20080407
  Receipt Date: 20080402
  Transmission Date: 20081010
  Serious: Yes (Life-Threatening)
  Sender: FDA-Public Use
  Company Number: IT-AVENTIS-200811300EU

PATIENT
  Age: 25 Year
  Sex: Female

DRUGS (1)
  1. ENOXAPARIN SODIUM [Suspect]
     Route: 058
     Dates: start: 20080311, end: 20080311

REACTIONS (1)
  - ANGIOEDEMA [None]
